FAERS Safety Report 10067246 (Version 1)
Quarter: 2014Q2

REPORT INFORMATION
  Report Type: Spontaneous
  Country: US (occurrence: None)
  Receive Date: 20140408
  Receipt Date: 20140408
  Transmission Date: 20141212
  Serious: Yes (Other)
  Sender: FDA-Public Use
  Company Number: None

PATIENT
  Age: 81 Year
  Sex: Female
  Weight: 79.38 kg

DRUGS (2)
  1. LIDOCAINE [Suspect]
     Indication: BACK PAIN
     Dosage: 5% 1 PATCH 12 HOURS ONE PER DAY SKIN
     Route: 061
     Dates: start: 201310, end: 201401
  2. LIDOCAINE [Suspect]
     Indication: MUSCULOSKELETAL PAIN
     Dosage: 5% 1 PATCH 12 HOURS ONE PER DAY SKIN
     Route: 061
     Dates: start: 201310, end: 201401

REACTIONS (6)
  - Product substitution issue [None]
  - Product quality issue [None]
  - Device difficult to use [None]
  - Product physical issue [None]
  - Product adhesion issue [None]
  - Incorrect dose administered by device [None]
